FAERS Safety Report 8955803 (Version 1)
Quarter: 2012Q4

REPORT INFORMATION
  Report Type: Spontaneous
  Country: DE (occurrence: None)
  Receive Date: 20121130
  Receipt Date: 20121130
  Transmission Date: 20130627
  Serious: Yes (Death)
  Sender: FDA-Public Use
  Company Number: 2012-20138

PATIENT
  Age: 30 Year
  Sex: Male

DRUGS (10)
  1. PARACETAMOL [Suspect]
     Indication: PRODUCT USED FOR UNKNOWN INDICATION
  2. RISPERIDONE [Suspect]
  3. HYDROXYZINE PAMOATE [Suspect]
  4. LIDOCAINE HYDROCHLORIDE [Suspect]
  5. COCAINE [Suspect]
  6. CAFFEINE [Suspect]
  7. HEROIN [Suspect]
  8. NOSCAPINE [Suspect]
  9. PAPAVERINE [Suspect]
  10. LEVAMISOLE [Suspect]

REACTIONS (1)
  - Death [None]
